FAERS Safety Report 18898589 (Version 1)
Quarter: 2021Q1

REPORT INFORMATION
  Report Type: Spontaneous
  Country: US (occurrence: US)
  Receive Date: 20210216
  Receipt Date: 20210216
  Transmission Date: 20210420
  Serious: Yes (Hospitalization)
  Sender: FDA-Public Use
  Company Number: None

PATIENT
  Age: 66 Year
  Sex: Male
  Weight: 130.1 kg

DRUGS (22)
  1. ASCORBIC ACID. [Concomitant]
     Active Substance: ASCORBIC ACID
  2. LEVOTHYROXINE. [Concomitant]
     Active Substance: LEVOTHYROXINE
  3. MELOXICAM. [Concomitant]
     Active Substance: MELOXICAM
  4. OXYCODONE [Concomitant]
     Active Substance: OXYCODONE
  5. TRAZODONE [Concomitant]
     Active Substance: TRAZODONE HYDROCHLORIDE
  6. ZOLPIDEM [Concomitant]
     Active Substance: ZOLPIDEM TARTRATE
  7. LENALIDOMIDE (CC?5013) [Suspect]
     Active Substance: LENALIDOMIDE
     Dates: end: 20171116
  8. FETZIMA [Concomitant]
     Active Substance: LEVOMILNACIPRAN HYDROCHLORIDE
  9. PYRIDOXINE HCL (VITAMIN B?6) [Concomitant]
  10. CALCIUM CARB?CHOLECALCIFEROL [Concomitant]
  11. PROCHLORPERAZINE. [Concomitant]
     Active Substance: PROCHLORPERAZINE
  12. TAMSULOSIN [Concomitant]
     Active Substance: TAMSULOSIN
  13. VELCADE [Suspect]
     Active Substance: BORTEZOMIB
     Dates: end: 20171106
  14. ACYCLOVIR. [Concomitant]
     Active Substance: ACYCLOVIR
  15. OMEPRAZOLE. [Concomitant]
     Active Substance: OMEPRAZOLE
  16. ONDANSETRON [Concomitant]
     Active Substance: ONDANSETRON
  17. DEXAMETHASONE. [Suspect]
     Active Substance: DEXAMETHASONE
     Dates: end: 20171114
  18. ALLOPURINOL. [Concomitant]
     Active Substance: ALLOPURINOL
  19. NYSTATIN. [Concomitant]
     Active Substance: NYSTATIN
  20. ASPIRIN. [Concomitant]
     Active Substance: ASPIRIN
  21. OXYCODONE [Concomitant]
     Active Substance: OXYCODONE
  22. MULTIPLE VITAMIN (MULTIVITAMIN) [Concomitant]

REACTIONS (13)
  - Streptococcus test positive [None]
  - Blood culture positive [None]
  - Pyrexia [None]
  - Lymphocyte count decreased [None]
  - Injection site cellulitis [None]
  - Injection site erythema [None]
  - Thrombocytopenia [None]
  - Injection site bruising [None]
  - Immunodeficiency [None]
  - Injection site rash [None]
  - Chills [None]
  - Skin lesion [None]
  - Neutropenia [None]

NARRATIVE: CASE EVENT DATE: 20171116
